FAERS Safety Report 21937572 (Version 3)
Quarter: 2023Q2

REPORT INFORMATION
  Report Type: Spontaneous
  Country: US (occurrence: US)
  Receive Date: 20230201
  Receipt Date: 20230428
  Transmission Date: 20230722
  Serious: Yes (Other)
  Sender: FDA-Public Use
  Company Number: US-TEVA-2023-US-2851613

PATIENT
  Age: 74 Year
  Sex: Female
  Weight: 122.47 kg

DRUGS (14)
  1. VALSARTAN [Suspect]
     Active Substance: VALSARTAN
     Indication: Hypertension
     Route: 065
     Dates: start: 20160421, end: 20170717
  2. VALSARTAN [Suspect]
     Active Substance: VALSARTAN
     Indication: Hypertension
     Route: 065
     Dates: start: 20160726, end: 20160809
  3. VALSARTAN [Suspect]
     Active Substance: VALSARTAN
     Route: 065
     Dates: start: 20170621, end: 20180417
  4. VALSARTAN [Suspect]
     Active Substance: VALSARTAN
     Indication: Hypertension
     Route: 065
     Dates: start: 20140621, end: 20140728
  5. VALSARTAN [Suspect]
     Active Substance: VALSARTAN
     Route: 065
     Dates: start: 20141202, end: 20150302
  6. VALSARTAN [Suspect]
     Active Substance: VALSARTAN
     Indication: Hypertension
     Route: 065
     Dates: start: 20150401, end: 20160407
  7. VALSARTAN [Suspect]
     Active Substance: VALSARTAN
     Indication: Hypertension
     Route: 065
     Dates: start: 20180725, end: 20181023
  8. VALSARTAN [Suspect]
     Active Substance: VALSARTAN
     Route: 065
     Dates: start: 20181010, end: 20190524
  9. ATENOLOL [Concomitant]
     Active Substance: ATENOLOL
     Indication: Hypertension
     Dosage: 50 MILLIGRAM DAILY;
     Route: 065
     Dates: start: 20140518
  10. CHLORTHALIDONE [Concomitant]
     Active Substance: CHLORTHALIDONE
     Indication: Hypertension
     Dosage: 500 MILLIGRAM DAILY;
     Route: 065
     Dates: start: 20090513
  11. FENOFIBRATE [Concomitant]
     Active Substance: FENOFIBRATE
     Indication: Blood cholesterol increased
     Dosage: 145 MILLIGRAM DAILY;
     Route: 065
     Dates: start: 20131216
  12. OMEPRAZOLE [Concomitant]
     Active Substance: OMEPRAZOLE
     Indication: Dyspepsia
     Dosage: 20 MILLIGRAM DAILY;
     Route: 065
     Dates: start: 20140421
  13. SERTRALINE [Concomitant]
     Active Substance: SERTRALINE HYDROCHLORIDE
     Indication: Depression
     Dosage: 50 MILLIGRAM DAILY;
     Route: 065
     Dates: start: 20131203
  14. DIAZEPAM [Concomitant]
     Active Substance: DIAZEPAM
     Indication: Anxiety
     Dosage: 5MG EVERY 6 HOURS AS NEEDED
     Dates: start: 20080223

REACTIONS (3)
  - Hepatic cancer metastatic [Recovered/Resolved]
  - Cholangiocarcinoma [Not Recovered/Not Resolved]
  - Metastasis [Not Recovered/Not Resolved]

NARRATIVE: CASE EVENT DATE: 20190101
